FAERS Safety Report 21395515 (Version 1)
Quarter: 2022Q3

REPORT INFORMATION
  Report Type: Report from Study
  Country: BR (occurrence: BR)
  Receive Date: 20220930
  Receipt Date: 20220930
  Transmission Date: 20221026
  Serious: Yes (Other)
  Sender: FDA-Public Use
  Company Number: BR-NOVARTISPH-NVSC2022BR207250

PATIENT
  Age: 32 Year
  Sex: Female
  Weight: 55 kg

DRUGS (4)
  1. KISQALI [Suspect]
     Active Substance: RIBOCICLIB
     Indication: Breast cancer metastatic
     Dosage: 600 MG, QD
     Route: 065
  2. PACLITAXEL [Suspect]
     Active Substance: PACLITAXEL
     Indication: Hormone receptor positive HER2 negative breast cancer
     Dosage: UNK, QW
     Route: 065
     Dates: start: 20211221
  3. LEUPROLIDE ACETATE [Suspect]
     Active Substance: LEUPROLIDE ACETATE
     Indication: Breast cancer metastatic
     Dosage: 22.5 MG (EVERY 90 DAYS)
     Route: 065
     Dates: start: 20220520
  4. EXEMESTANE [Concomitant]
     Active Substance: EXEMESTANE
     Indication: Breast cancer metastatic
     Dosage: 25 MG, QD
     Route: 065

REACTIONS (8)
  - Metastases to bone [Unknown]
  - Pulmonary mass [Unknown]
  - Menstruation irregular [Recovered/Resolved]
  - Hepatic mass [Unknown]
  - Osteolysis [Unknown]
  - Lymphadenopathy [Unknown]
  - Constipation [Recovering/Resolving]
  - Arthropod sting [Recovering/Resolving]

NARRATIVE: CASE EVENT DATE: 20220208
